FAERS Safety Report 17067010 (Version 4)
Quarter: 2020Q2

REPORT INFORMATION
  Report Type: Spontaneous
  Country: DE (occurrence: DE)
  Receive Date: 20191122
  Receipt Date: 20200511
  Transmission Date: 20200713
  Serious: Yes (Other)
  Sender: FDA-Public Use
  Company Number: DE-BAYER-2019-206917

PATIENT
  Age: 16 Year
  Sex: Male
  Weight: 51 kg

DRUGS (1)
  1. JIVI [Suspect]
     Active Substance: DAMOCTOCOG ALFA PEGOL
     Indication: HAEMORRHAGE PROPHYLAXIS
     Dosage: UNK
     Dates: start: 20191014, end: 20191116

REACTIONS (4)
  - Drug ineffective [None]
  - Haemarthrosis [None]
  - Drug specific antibody [None]
  - Coagulation factor VIII level decreased [None]

NARRATIVE: CASE EVENT DATE: 201911
